FAERS Safety Report 6770433-7 (Version None)
Quarter: 2010Q2

REPORT INFORMATION
  Report Type: 
  Country: None (occurrence: None)
  Receive Date: 20100615
  Receipt Date: 20100610
  Transmission Date: 20101027
  Serious: No
  Sender: FDA-Public Use
  Company Number: US-CEPHALON-2009009567

PATIENT
  Sex: Male
  Weight: 163 kg

DRUGS (1)
  1. FENTORA [Suspect]
     Indication: BACK PAIN
     Route: 002

REACTIONS (2)
  - DRUG DISPENSING ERROR [None]
  - DRUG PRESCRIBING ERROR [None]
